FAERS Safety Report 4981664-0 (Version None)
Quarter: 2006Q2

REPORT INFORMATION
  Report Type: 
  Country: None (occurrence: None)
  Receive Date: 20060425
  Receipt Date: 20060124
  Transmission Date: 20061013
  Serious: No
  Sender: FDA-Public Use
  Company Number: US-GLAXOSMITHKLINE-A0590749A

PATIENT
  Age: 61 Year
  Sex: Male
  Weight: 81 kg

DRUGS (3)
  1. LEXIVA [Suspect]
     Indication: HIV INFECTION
     Dosage: 700MG TWICE PER DAY
     Route: 048
     Dates: start: 20060111, end: 20060124
  2. COMBIVIR [Concomitant]
     Dosage: 1TAB TWICE PER DAY
     Route: 048
  3. NORVIR [Concomitant]
     Dosage: 1CAP TWICE PER DAY
     Route: 048
     Dates: start: 20060111, end: 20060124

REACTIONS (1)
  - RASH [None]
